FAERS Safety Report 8686545 (Version 2)
Quarter: 2014Q3

REPORT INFORMATION
  Report Type: Spontaneous
  Country: US (occurrence: US)
  Receive Date: 20120726
  Receipt Date: 20140805
  Transmission Date: 20150326
  Serious: Yes (Hospitalization, Disabling, Other)
  Sender: FDA-Public Use
  Company Number: US-009507513-1207USA006590

PATIENT
  Sex: Female
  Weight: 65.76 kg

DRUGS (1)
  1. NUVARING [Suspect]
     Active Substance: ETHINYL ESTRADIOL\ETONOGESTREL
     Indication: CONTRACEPTION
     Dosage: LEAVE IN FOR 21 DAYS Q MONTH, ONE WEEK RING FREE Q MONTH
     Route: 067
     Dates: start: 200704, end: 20080106

REACTIONS (16)
  - Superior sagittal sinus thrombosis [Not Recovered/Not Resolved]
  - Haemorrhagic stroke [Not Recovered/Not Resolved]
  - Pigmentation disorder [Unknown]
  - Uterine cervix stenosis [Unknown]
  - Weight decreased [Unknown]
  - Occupational asthma [Unknown]
  - Paranasal cyst [Unknown]
  - Balint^s syndrome [Unknown]
  - Headache [Unknown]
  - Tonsillectomy [Unknown]
  - Anxiety [Unknown]
  - Convulsion [Unknown]
  - Cognitive disorder [Unknown]
  - Anaemia [Unknown]
  - Atrophy [Unknown]
  - Gastrointestinal disorder [Unknown]

NARRATIVE: CASE EVENT DATE: 20070516
